FAERS Safety Report 16041558 (Version 1)
Quarter: 2019Q1

REPORT INFORMATION
  Report Type: Spontaneous
  Country: US (occurrence: US)
  Receive Date: 20190306
  Receipt Date: 20190306
  Transmission Date: 20190418
  Serious: Yes (Other)
  Sender: FDA-Public Use
  Company Number: US-ACCORD-110563

PATIENT
  Sex: Male

DRUGS (7)
  1. MYCOPHENOLIC ACID. [Concomitant]
     Active Substance: MYCOPHENOLIC ACID
  2. LEXAPRO [Concomitant]
     Active Substance: ESCITALOPRAM OXALATE
  3. PRAVACHOL [Concomitant]
     Active Substance: PRAVASTATIN SODIUM
  4. COREG [Concomitant]
     Active Substance: CARVEDILOL
  5. TACROLIMUS ACCORD [Suspect]
     Active Substance: TACROLIMUS
     Indication: PRODUCT USED FOR UNKNOWN INDICATION
     Dosage: 2 MG IN MORNING, 1 MG AT NIGHT
     Route: 048
     Dates: start: 20130509
  6. CARVEDILOL/CARVEDILOL HYDROCHLODRIDE [Concomitant]
  7. BUPROPION. [Concomitant]
     Active Substance: BUPROPION

REACTIONS (5)
  - Condition aggravated [Not Recovered/Not Resolved]
  - Parkinson^s disease [Not Recovered/Not Resolved]
  - Dementia [Not Recovered/Not Resolved]
  - Bedridden [Not Recovered/Not Resolved]
  - Walking disability [Not Recovered/Not Resolved]

NARRATIVE: CASE EVENT DATE: 2015
